FAERS Safety Report 7892632-3 (Version None)
Quarter: 2011Q4

REPORT INFORMATION
  Report Type: 
  Country: None (occurrence: None)
  Receive Date: 20111024
  Receipt Date: 20111017
  Transmission Date: 20120403
  Serious: Yes (Other)
  Sender: FDA-Public Use
  Company Number: 2011029124

PATIENT
  Age: 68 Year
  Sex: Female
  Weight: 74.3899 kg

DRUGS (12)
  1. SPIRIVA [Concomitant]
  2. HIZENTRA [Suspect]
  3. RESTORIL [Concomitant]
  4. SYNTHROID [Concomitant]
  5. HIZENTRA [Suspect]
  6. FLONASE [Concomitant]
  7. HIZENTRA [Suspect]
     Indication: HYPOGAMMAGLOBULINAEMIA
     Dosage: 8 G 1/WEEK, 8 G (40 ML) VIA 3 SITES OVER 72 MINUTES SUBCUTANEOUS
     Route: 058
     Dates: start: 20101004
  8. ADVAIR HFA [Concomitant]
  9. WELLBUTRIN XL (BYPROPION) [Concomitant]
  10. PREDNISONE TAB [Concomitant]
  11. HIZENTRA [Suspect]
  12. XOPENEX [Concomitant]

REACTIONS (4)
  - COUGH [None]
  - RESPIRATORY TRACT INFECTION [None]
  - SPUTUM DISCOLOURED [None]
  - LOWER RESPIRATORY TRACT INFECTION [None]
